FAERS Safety Report 24690432 (Version 2)
Quarter: 2024Q4

REPORT INFORMATION
  Report Type: Spontaneous
  Country: US (occurrence: US)
  Receive Date: 20241203
  Receipt Date: 20241208
  Transmission Date: 20250114
  Serious: No
  Sender: SANOFI AVENTIS
  Company Number: US-SA-2024SA353776

PATIENT
  Age: 45 Year
  Sex: Female
  Weight: 64.09 kg

DRUGS (1)
  1. DUPIXENT [Suspect]
     Active Substance: DUPILUMAB
     Indication: Nasal polyps
     Dosage: 300MG QOW
     Dates: start: 20241121

REACTIONS (3)
  - Injection site discomfort [Unknown]
  - Abdominal discomfort [Unknown]
  - Increased appetite [Unknown]

NARRATIVE: CASE EVENT DATE: 20241101
